FAERS Safety Report 13240126 (Version 1)
Quarter: 2017Q1

REPORT INFORMATION
  Report Type: Spontaneous
  Country: US (occurrence: US)
  Receive Date: 20170216
  Receipt Date: 20170216
  Transmission Date: 20170428
  Serious: Yes (Death, Hospitalization, Other)
  Sender: FDA-Public Use
  Company Number: US-GLAXOSMITHKLINE-US2017019955

PATIENT
  Age: 73 Year
  Sex: Male

DRUGS (16)
  1. LISINOPRIL. [Suspect]
     Active Substance: LISINOPRIL
     Indication: HYPERTENSION
     Dosage: 40 MG, QD
     Route: 048
     Dates: end: 20161227
  2. MUCINEX [Concomitant]
     Active Substance: GUAIFENESIN
  3. AMLODIPINE [Concomitant]
     Active Substance: AMLODIPINE BESYLATE
  4. ATORVASTATIN [Concomitant]
     Active Substance: ATORVASTATIN
  5. ADVAIR HFA [Suspect]
     Active Substance: FLUTICASONE PROPIONATE\SALMETEROL XINAFOATE
     Indication: EMPHYSEMA
     Dosage: 2 PUFF(S), BID
     Route: 055
  6. PLAVIX [Concomitant]
     Active Substance: CLOPIDOGREL BISULFATE
  7. ALBUTEROL HFA [Concomitant]
     Active Substance: ALBUTEROL SULFATE
  8. METOPROLOL. [Concomitant]
     Active Substance: METOPROLOL
  9. DUONEB [Concomitant]
     Active Substance: ALBUTEROL SULFATE\IPRATROPIUM BROMIDE
  10. LEVOTHYROXINE. [Concomitant]
     Active Substance: LEVOTHYROXINE
  11. TYLENOL [Concomitant]
     Active Substance: ACETAMINOPHEN
  12. ADVAIR HFA [Suspect]
     Active Substance: FLUTICASONE PROPIONATE\SALMETEROL XINAFOATE
     Indication: CHRONIC OBSTRUCTIVE PULMONARY DISEASE
  13. ALLOPURINOL. [Concomitant]
     Active Substance: ALLOPURINOL
  14. ASPIRIN. [Concomitant]
     Active Substance: ASPIRIN
  15. ADVAIR DISKUS [Suspect]
     Active Substance: FLUTICASONE PROPIONATE\SALMETEROL XINAFOATE
     Indication: PRODUCT USED FOR UNKNOWN INDICATION
     Dosage: UNK
  16. ROFLUMILAST [Concomitant]
     Active Substance: ROFLUMILAST

REACTIONS (7)
  - Hypertension [Unknown]
  - Colitis ischaemic [Fatal]
  - Sepsis [Recovered/Resolved]
  - Angioedema [Fatal]
  - Pneumonia [Fatal]
  - Gastrointestinal necrosis [Fatal]
  - Swollen tongue [Unknown]

NARRATIVE: CASE EVENT DATE: 20160828
